FAERS Safety Report 23554692 (Version 2)
Quarter: 2024Q2

REPORT INFORMATION
  Report Type: Report from Study
  Country: US (occurrence: US)
  Receive Date: 20240222
  Receipt Date: 20240416
  Transmission Date: 20240715
  Serious: Yes (Other)
  Sender: FDA-Public Use
  Company Number: US-AMX-007464

PATIENT
  Age: 73 Year
  Sex: Female

DRUGS (2)
  1. RELYVRIO [Suspect]
     Active Substance: SODIUM PHENYLBUTYRATE\TAURURSODIOL
     Indication: Amyotrophic lateral sclerosis
     Dosage: 1 SACHET ONCE DAILY FOR 3WKS, THEN 1 SACHET TWICE DAILY.
     Route: 048
  2. RADICAVA [Suspect]
     Active Substance: EDARAVONE
     Indication: Product used for unknown indication

REACTIONS (8)
  - Choking [Unknown]
  - Stress [Unknown]
  - Diarrhoea [Recovered/Resolved]
  - Product use complaint [Unknown]
  - Salivary hypersecretion [Unknown]
  - Product quality issue [Unknown]
  - Asthenia [Unknown]
  - Palpitations [Unknown]
